FAERS Safety Report 9683094 (Version 1)
Quarter: 2013Q4

REPORT INFORMATION
  Report Type: Spontaneous
  Country: US (occurrence: None)
  Receive Date: 20131111
  Receipt Date: 20131111
  Transmission Date: 20140711
  Serious: Yes (Other)
  Sender: FDA-Public Use
  Company Number: None

PATIENT
  Age: 75 Year
  Sex: Male
  Weight: 75.9 kg

DRUGS (1)
  1. LINAGLIPTIN [Suspect]
     Indication: DIABETES MELLITUS
     Route: 048
     Dates: start: 20131003

REACTIONS (2)
  - Muscle spasms [None]
  - Neuropathy peripheral [None]
